FAERS Safety Report 5535336-4 (Version None)
Quarter: 2007Q4

REPORT INFORMATION
  Report Type: 
  Country: None (occurrence: None)
  Receive Date: 20071204
  Receipt Date: 20071119
  Transmission Date: 20080405
  Serious: Yes (Other)
  Sender: FDA-Public Use
  Company Number: 020822

PATIENT
  Age: 41 Year
  Sex: Female

DRUGS (5)
  1. CLARAVIS [Suspect]
     Indication: ROSACEA
     Dosage: 40 MG, QD, ORAL; 40 MG, BID, ORAL
     Route: 048
     Dates: start: 20070830, end: 20070930
  2. CLARAVIS [Suspect]
     Indication: ROSACEA
     Dosage: 40 MG, QD, ORAL; 40 MG, BID, ORAL
     Route: 048
     Dates: start: 20071001, end: 20071119
  3. ALLEGRA [Concomitant]
  4. ASPIRIN [Concomitant]
  5. VITAMIN E [Concomitant]

REACTIONS (8)
  - ANXIETY [None]
  - DIZZINESS [None]
  - DYSPNOEA [None]
  - ERUCTATION [None]
  - GAIT DISTURBANCE [None]
  - HYPERVENTILATION [None]
  - PANIC ATTACK [None]
  - THROAT TIGHTNESS [None]
